FAERS Safety Report 8825054 (Version 2)
Quarter: 2012Q4

REPORT INFORMATION
  Report Type: 
  Country: US (occurrence: US)
  Receive Date: 20121004
  Receipt Date: 20121204
  Transmission Date: 20130627
  Serious: Yes (Other)
  Sender: FDA-Public Use
  Company Number: US-JNJFOC-20120710586

PATIENT
  Age: 87 Year
  Sex: Female
  Weight: 53.52 kg

DRUGS (20)
  1. BENADRYL ALLERGY DYE-FREE [Suspect]
     Indication: SLEEP DISORDER THERAPY
     Dosage: NDC 50580-228-24; 25mg for 4 nights
     Route: 048
     Dates: start: 20120627, end: 20120630
  2. TIMOLOL [Concomitant]
     Indication: GLAUCOMA
     Route: 065
  3. NASONEX [Concomitant]
     Indication: LUNG DISORDER
     Route: 065
  4. FLUOXETINE [Concomitant]
     Indication: BLOOD PRESSURE
     Route: 065
  5. EVISTA [Concomitant]
     Indication: BLOOD PRESSURE
     Route: 065
  6. LISINOPRIL [Concomitant]
     Indication: HYPERTENSION
     Route: 065
     Dates: start: 20120531, end: 20120912
  7. LISINOPRIL [Concomitant]
     Indication: HYPERTENSION
     Route: 065
  8. LISINOPRIL [Concomitant]
     Indication: GASTROOESOPHAGEAL REFLUX DISEASE
     Route: 065
  9. LISINOPRIL [Concomitant]
     Indication: GASTROOESOPHAGEAL REFLUX DISEASE
     Route: 065
     Dates: start: 20120531, end: 20120912
  10. AMITRIPTYLINE [Concomitant]
     Indication: PAIN
     Route: 065
     Dates: start: 1972
  11. LORAZEPAM [Concomitant]
     Indication: DEPRESSION
     Route: 065
     Dates: start: 1972
  12. SINGULAIR [Concomitant]
     Indication: LUNG DISORDER
     Route: 065
  13. ZYPREXA [Concomitant]
     Indication: FEELING OF RELAXATION
     Route: 065
     Dates: start: 1972
  14. ZYPREXA [Concomitant]
     Indication: SLEEP DISORDER THERAPY
     Route: 065
     Dates: start: 1972
  15. ACETAMINOPHEN [Concomitant]
     Indication: PAIN
     Route: 065
  16. TIMOPTIC [Concomitant]
     Indication: ANGLE CLOSURE GLAUCOMA
     Dosage: 10 years
     Route: 065
  17. VITAMINE E [Concomitant]
     Dosage: many years
     Route: 065
  18. VITAMIN D [Concomitant]
     Dosage: many years
     Route: 065
  19. CALCIUM [Concomitant]
     Dosage: many years
     Route: 065
  20. VITAMIN B12 NOS W/VITAMIN B6 [Concomitant]
     Route: 065

REACTIONS (9)
  - Paranoia [Unknown]
  - Intraocular pressure increased [Recovering/Resolving]
  - Personality change [Unknown]
  - Delusion [Unknown]
  - Incorrect dose administered [Recovered/Resolved]
  - Off label use [Recovered/Resolved]
  - Drug ineffective for unapproved indication [Unknown]
  - Aggression [None]
  - Fall [None]
